FAERS Safety Report 7632830 (Version 2)
Quarter: 2013Q3

REPORT INFORMATION
  Report Type: Report from Study
  Country: US (occurrence: US)
  Receive Date: 20101018
  Receipt Date: 20130816
  Transmission Date: 20140515
  Serious: Yes (Congenital Anomaly, Other)
  Sender: FDA-Public Use
  Company Number: US-ABBOTT-10P-163-0678277-00

PATIENT
  Sex: 0

DRUGS (1)
  1. HUMIRA 40 MG/ 0.8 ML PRE-FILLED SYRINGE [Suspect]
     Indication: MATERNAL EXPOSURE TIMING UNSPECIFIED
     Route: 064

REACTIONS (4)
  - Glucose-6-phosphate dehydrogenase deficiency [Unknown]
  - Foetal exposure during pregnancy [Unknown]
  - Staphylococcal infection [Recovered/Resolved]
  - Abscess [Recovered/Resolved]
